FAERS Safety Report 16049469 (Version 1)
Quarter: 2019Q1

REPORT INFORMATION
  Report Type: Report from Study
  Country: US (occurrence: US)
  Receive Date: 20190307
  Receipt Date: 20190307
  Transmission Date: 20190418
  Serious: Yes (Other)
  Sender: FDA-Public Use
  Company Number: US-TEVA-2019-US-1019686

PATIENT
  Age: 61 Year
  Sex: Female

DRUGS (2)
  1. PEMBROLIZUMAB. [Suspect]
     Active Substance: PEMBROLIZUMAB
     Indication: PLASMA CELL MYELOMA
     Dosage: TWO CYCLES
     Route: 065
  2. LANSOPRAZOLE. [Suspect]
     Active Substance: LANSOPRAZOLE
     Indication: GASTROOESOPHAGEAL REFLUX DISEASE
     Dosage: 30 MILLIGRAM DAILY;
     Route: 065

REACTIONS (2)
  - Glomerulonephritis [Recovering/Resolving]
  - Tubulointerstitial nephritis [Recovering/Resolving]
